FAERS Safety Report 15784315 (Version 5)
Quarter: 2019Q4

REPORT INFORMATION
  Report Type: Report from Study
  Country: JP (occurrence: JP)
  Receive Date: 20190103
  Receipt Date: 20191101
  Transmission Date: 20200122
  Serious: Yes (Life-Threatening, Hospitalization, Other)
  Sender: FDA-Public Use
  Company Number: JP-ASTELLAS-2018JP024804AA

PATIENT
  Age: 8 Decade
  Sex: Female
  Weight: 42 kg

DRUGS (4)
  1. DAIPHEN [Concomitant]
     Active Substance: SULFAMETHOXAZOLE\TRIMETHOPRIM
     Indication: PROPHYLAXIS
     Dosage: 1 TABLET/DAY, UNKNOWN FREQ.
     Route: 048
  2. TAKECAB [Concomitant]
     Active Substance: VONOPRAZAN FUMURATE
     Indication: PROPHYLAXIS
     Dosage: 10 MG/DAY, UNKNOWN FREQ.
     Route: 048
  3. ASP2215 [Suspect]
     Active Substance: GILTERITINIB
     Indication: ACUTE MYELOID LEUKAEMIA RECURRENT
     Route: 048
     Dates: start: 20181222, end: 20190129
  4. FLUCONAZOLE. [Concomitant]
     Active Substance: FLUCONAZOLE
     Indication: PROPHYLAXIS
     Dosage: 200 MG/DAY, UNKNOWN FREQ.
     Route: 048

REACTIONS (6)
  - Hepatic function abnormal [Recovering/Resolving]
  - Bone marrow failure [Recovering/Resolving]
  - Thrombotic microangiopathy [Recovering/Resolving]
  - Platelet count decreased [Not Recovered/Not Resolved]
  - Renal impairment [Recovering/Resolving]
  - Lower gastrointestinal haemorrhage [Recovered/Resolved]

NARRATIVE: CASE EVENT DATE: 20181226
